FAERS Safety Report 19938198 (Version 1)
Quarter: 2021Q4

REPORT INFORMATION
  Report Type: Spontaneous
  Country: US (occurrence: US)
  Receive Date: 20211011
  Receipt Date: 20211011
  Transmission Date: 20220304
  Serious: Yes (Other)
  Sender: FDA-Public Use
  Company Number: US-009507513-2110USA001853

PATIENT
  Age: 50 Year
  Sex: Female

DRUGS (2)
  1. BELSOMRA [Suspect]
     Active Substance: SUVOREXANT
     Indication: Somnolence
     Dosage: 20MG NIGHTLY
     Route: 048
  2. AMBIEN [Concomitant]
     Active Substance: ZOLPIDEM TARTRATE
     Dosage: 10 MILLIGRAM

REACTIONS (4)
  - Hallucination [Recovered/Resolved]
  - Insomnia [Recovered/Resolved]
  - Movement disorder [Recovered/Resolved]
  - Sleep paralysis [Recovered/Resolved]
